FAERS Safety Report 13725234 (Version 2)
Quarter: 2017Q3

REPORT INFORMATION
  Report Type: Report from Study
  Country: US (occurrence: US)
  Receive Date: 20170707
  Receipt Date: 20170825
  Transmission Date: 20171127
  Serious: Yes (Other)
  Sender: FDA-Public Use
  Company Number: US-GILEAD-2017-0281646

PATIENT
  Age: 26 Year
  Sex: Male

DRUGS (1)
  1. AMBRISENTAN [Suspect]
     Active Substance: AMBRISENTAN
     Indication: PULMONARY HYPERTENSION
     Dosage: 10 MG, QD
     Route: 065
     Dates: start: 20161207

REACTIONS (5)
  - Rectal haemorrhage [Unknown]
  - Transplant evaluation [Unknown]
  - Anaemia [Unknown]
  - Gastritis [Unknown]
  - Oesophageal ulcer [Unknown]
